FAERS Safety Report 4829923-6 (Version None)
Quarter: 2005Q4

REPORT INFORMATION
  Report Type: 
  Country: None (occurrence: None)
  Receive Date: 20051115
  Receipt Date: 20051104
  Transmission Date: 20060501
  Serious: Yes (Hospitalization, Other)
  Sender: FDA-Public Use
  Company Number: 2005142465

PATIENT
  Age: 63 Year
  Sex: Male
  Weight: 82.5547 kg

DRUGS (24)
  1. LIPITOR [Suspect]
     Indication: BLOOD CHOLESTEROL INCREASED
     Dosage: 20 MG (20 MG, 1 IN 1 D)
     Dates: start: 20050101, end: 20050923
  2. OXYGEN (OXYGEN) [Concomitant]
  3. AVANDIA [Concomitant]
  4. METOFORMIN (METFORMIN) [Concomitant]
  5. ACIPHEX [Concomitant]
  6. IRON (IRON) [Concomitant]
  7. VITAMINS (VITAMINS) [Concomitant]
  8. ALL OTHER THERAPEUTIC PRODUCTS (ALL OTHER THERAPEUTIC PRODUCTS) [Concomitant]
  9. ASPIRIN [Concomitant]
  10. ANDROGEL [Concomitant]
  11. FOLIC ACID [Concomitant]
  12. IMIPRAMINE [Concomitant]
  13. VALIUM [Concomitant]
  14. ACYCLOVIR [Concomitant]
  15. VITAMIN C (VITAMIN C) [Concomitant]
  16. CALCIUM (CALCIUM) [Concomitant]
  17. GLUCOSAMINE (GLUCOSAMINE) [Concomitant]
  18. AZITHROMYCIN [Concomitant]
  19. PROCTOFOAM (PRAMOCAINE HYDROCHLORIDE) [Concomitant]
  20. VITAMIN B12 [Concomitant]
  21. MYLANTA (ALUMINIUM HYDROXIDE, MAGNESIUM HYDROXIDE, SIMETHICONE) [Concomitant]
  22. GUAIFENESIN (GUAIFENESIN) [Concomitant]
  23. CLARITIN-D [Concomitant]
  24. IBUPROFEN [Concomitant]

REACTIONS (9)
  - ABDOMINAL DISTENSION [None]
  - ABDOMINAL PAIN [None]
  - BLOOD SODIUM DECREASED [None]
  - CHEST PAIN [None]
  - DRUG INEFFECTIVE [None]
  - NAUSEA [None]
  - OEDEMA [None]
  - PANCREATIC DISORDER [None]
  - PANCREATITIS ACUTE [None]
